FAERS Safety Report 5105731-6 (Version None)
Quarter: 2006Q3

REPORT INFORMATION
  Report Type: 
  Country: None (occurrence: None)
  Receive Date: 20060915
  Receipt Date: 20060905
  Transmission Date: 20061208
  Serious: Yes (Death)
  Sender: FDA-Public Use
  Company Number: US-JNJFOC-20060902622

PATIENT
  Age: 18 Year
  Sex: Male

DRUGS (7)
  1. CYCLOBENZAPRINE HCL [Suspect]
     Indication: SUICIDE ATTEMPT
     Route: 048
  2. IBUPROFEN [Suspect]
     Indication: SUICIDE ATTEMPT
     Route: 048
  3. PSEUDOEPHEDRINE HCL [Suspect]
     Indication: SUICIDE ATTEMPT
     Route: 048
  4. ASPIRIN [Suspect]
     Indication: SUICIDE ATTEMPT
     Route: 048
  5. ACETAMINOPHEN 325 MG/CODEINE 30 MG [Suspect]
     Indication: SUICIDE ATTEMPT
     Route: 048
  6. NAPROXEN [Suspect]
     Indication: SUICIDE ATTEMPT
     Route: 048
  7. ESCITALOPRAM [Suspect]
     Indication: SUICIDE ATTEMPT
     Route: 048

REACTIONS (16)
  - ALANINE AMINOTRANSFERASE INCREASED [None]
  - ASPARTATE AMINOTRANSFERASE INCREASED [None]
  - BLOOD CREATINE PHOSPHOKINASE INCREASED [None]
  - BLOOD PH DECREASED [None]
  - BODY TEMPERATURE INCREASED [None]
  - COMPLETED SUICIDE [None]
  - HEPATIC FUNCTION ABNORMAL [None]
  - HYPOTENSION [None]
  - LOSS OF CONSCIOUSNESS [None]
  - MULTIPLE DRUG OVERDOSE INTENTIONAL [None]
  - MYOGLOBIN BLOOD INCREASED [None]
  - RENAL IMPAIRMENT [None]
  - RESPIRATORY FAILURE [None]
  - SUBARACHNOID HAEMORRHAGE [None]
  - TACHYCARDIA [None]
  - URINARY RETENTION [None]
